FAERS Safety Report 7532105-0 (Version None)
Quarter: 2011Q2

REPORT INFORMATION
  Report Type: 
  Country: None (occurrence: None)
  Receive Date: 20110608
  Receipt Date: 20110602
  Transmission Date: 20111010
  Serious: No
  Sender: FDA-Public Use
  Company Number: US-PFIZER INC-2011120649

PATIENT
  Age: 57 Year
  Sex: Female

DRUGS (7)
  1. CELEBREX [Concomitant]
     Dosage: UNK
  2. XANAX [Suspect]
     Indication: INSOMNIA
     Dosage: UNK
     Dates: end: 20110401
  3. MAGNESIUM [Concomitant]
     Dosage: UNK
  4. LUNESTA [Suspect]
     Indication: INSOMNIA
     Dosage: 3 MG, AT BEDTIME
     Route: 048
     Dates: start: 20110401
  5. VITAMIN B [Concomitant]
     Dosage: UNK
  6. PROMETRIUM [Concomitant]
     Dosage: UNK
  7. VITAMIN D [Concomitant]
     Dosage: UNK

REACTIONS (2)
  - DRUG INEFFECTIVE [None]
  - MIDDLE INSOMNIA [None]
